FAERS Safety Report 13247001 (Version 1)
Quarter: 2017Q1

REPORT INFORMATION
  Report Type: Report from Study
  Country: BR (occurrence: BR)
  Receive Date: 20170217
  Receipt Date: 20170217
  Transmission Date: 20170428
  Serious: Yes (Hospitalization, Other)
  Sender: FDA-Public Use
  Company Number: BR-BIOGEN-2017BI00358005

PATIENT
  Sex: Female

DRUGS (1)
  1. TYSABRI [Suspect]
     Active Substance: NATALIZUMAB
     Indication: MULTIPLE SCLEROSIS
     Route: 042
     Dates: start: 201409

REACTIONS (7)
  - Pain [Unknown]
  - Urinary tract infection [Unknown]
  - Bone pain [Unknown]
  - Quadriplegia [Unknown]
  - Exostosis [Unknown]
  - Cystostomy [Unknown]
  - Acinetobacter infection [Unknown]
